FAERS Safety Report 4803815-0 (Version None)
Quarter: 2005Q4

REPORT INFORMATION
  Report Type: 
  Country: None (occurrence: None)
  Receive Date: 20051014
  Receipt Date: 20051014
  Transmission Date: 20060501
  Serious: Yes (Hospitalization)
  Sender: FDA-Public Use
  Company Number: 2005-01855

PATIENT
  Age: 51 Year
  Sex: Female
  Weight: 90 kg

DRUGS (8)
  1. VELCADE [Suspect]
     Indication: MULTIPLE MYELOMA
     Dosage: 2.60 MG, 2/WEEK, INTRAVENOUS
     Route: 042
     Dates: start: 20050816, end: 20050101
  2. VELCADE [Suspect]
     Indication: MULTIPLE MYELOMA
     Dosage: 2.60 MG, 2/WEEK, INTRAVENOUS
     Route: 042
     Dates: start: 20050624, end: 20050811
  3. VELCADE [Suspect]
     Indication: MULTIPLE MYELOMA
     Dosage: 2.60 MG, 2/WEEK, INTRAVENOUS
     Route: 042
     Dates: start: 20050909, end: 20050919
  4. VELCADE [Suspect]
  5. AMLODIPINE [Concomitant]
  6. INSULIN [Concomitant]
  7. RANITIDINE [Concomitant]
  8. TRAMADOL HCL [Concomitant]

REACTIONS (12)
  - ABDOMINAL PAIN UPPER [None]
  - AMYLOIDOSIS [None]
  - ASCITES [None]
  - BIOPSY BONE MARROW ABNORMAL [None]
  - DISEASE PROGRESSION [None]
  - FATIGUE [None]
  - HAEMOGLOBIN DECREASED [None]
  - HEPATOMEGALY [None]
  - PLATELET COUNT DECREASED [None]
  - PSYCHOTIC DISORDER [None]
  - RENAL CYST [None]
  - WHITE BLOOD CELL COUNT DECREASED [None]
